FAERS Safety Report 6943518-X (Version None)
Quarter: 2010Q3

REPORT INFORMATION
  Report Type: 
  Country: None (occurrence: None)
  Receive Date: 20100826
  Receipt Date: 20100813
  Transmission Date: 20110219
  Serious: Yes (Hospitalization, Other)
  Sender: FDA-Public Use
  Company Number: GB-MYLANLABS-2010S1014778

PATIENT
  Age: 32 Year
  Sex: Male

DRUGS (16)
  1. ETOPOSIDE [Suspect]
     Indication: TERATOMA OF TESTIS
     Dates: start: 19980101
  2. ETOPOSIDE [Suspect]
     Dates: start: 19990101
  3. BLEOMYCIN SULFATE [Suspect]
     Indication: TERATOMA OF TESTIS
     Dates: start: 19960101
  4. CYCLOSPORINE [Suspect]
     Indication: CHRONIC GRAFT VERSUS HOST DISEASE
     Dates: start: 19991201, end: 20030201
  5. CYCLOSPORINE [Suspect]
     Indication: ACUTE GRAFT VERSUS HOST DISEASE
     Dates: start: 19991201, end: 20030201
  6. CYCLOSPORINE [Suspect]
     Dates: start: 19980101
  7. CYCLOSPORINE [Suspect]
     Dates: start: 19980101
  8. CISPLATIN [Suspect]
     Indication: TERATOMA OF TESTIS
     Dates: start: 19960101
  9. CYTARABINE [Suspect]
     Indication: ACUTE MYELOID LEUKAEMIA
     Dates: start: 19980101
  10. CYTARABINE [Suspect]
     Dates: start: 19991101
  11. DAUNORUBICIN HCL [Suspect]
     Indication: ACUTE MYELOID LEUKAEMIA
     Dates: start: 19980101
  12. FLUDARABINE [Suspect]
     Indication: ACUTE MYELOID LEUKAEMIA
     Dates: start: 19991101
  13. FLUDARABINE [Suspect]
     Indication: STEM CELL TRANSPLANT
     Dates: start: 19991101
  14. MELPHALAN [Suspect]
     Indication: STEM CELL TRANSPLANT
     Dates: start: 20091201
  15. PREDNISOLONE [Suspect]
     Indication: ACUTE GRAFT VERSUS HOST DISEASE
     Dates: start: 19980101
  16. VARIOUS THERAPEUTIC RADIOPHARMACEUTICALS [Suspect]
     Indication: ALLOGENIC BONE MARROW TRANSPLANTATION THERAPY

REACTIONS (3)
  - NEOPLASM SKIN [None]
  - OESOPHAGEAL SQUAMOUS CELL CARCINOMA [None]
  - SWEAT GLAND TUMOUR [None]
